FAERS Safety Report 17241537 (Version 2)
Quarter: 2020Q1

REPORT INFORMATION
  Report Type: Report from Study
  Country: KR (occurrence: KR)
  Receive Date: 20200107
  Receipt Date: 20200204
  Transmission Date: 20200409
  Serious: Yes (Hospitalization)
  Sender: FDA-Public Use
  Company Number: KR-EISAI MEDICAL RESEARCH-EC-2020-068038

PATIENT
  Age: 70 Year
  Sex: Male
  Weight: 64 kg

DRUGS (15)
  1. ONEALFA [Concomitant]
     Active Substance: ALFACALCIDOL
  2. ATOZET [Concomitant]
     Active Substance: ATORVASTATIN CALCIUM\EZETIMIBE
  3. LENVIMA [Suspect]
     Active Substance: LENVATINIB
     Indication: PAPILLARY THYROID CANCER
     Route: 048
     Dates: start: 20190228, end: 20190320
  4. DUPHALAC [Concomitant]
     Active Substance: LACTULOSE
  5. LENVIMA [Suspect]
     Active Substance: LENVATINIB
     Route: 048
     Dates: start: 20190405, end: 20190418
  6. PLAVIX A [Concomitant]
  7. AMBRECT [Concomitant]
  8. LYRICA [Concomitant]
     Active Substance: PREGABALIN
  9. LENVIMA [Suspect]
     Active Substance: LENVATINIB
     Route: 048
     Dates: start: 20191001, end: 20191230
  10. LENVIMA [Suspect]
     Active Substance: LENVATINIB
     Route: 048
     Dates: start: 20190628, end: 20190930
  11. LENVIMA [Suspect]
     Active Substance: LENVATINIB
     Route: 048
     Dates: start: 20190321, end: 20190404
  12. LENVIMA [Suspect]
     Active Substance: LENVATINIB
     Route: 048
     Dates: start: 20190419, end: 20190627
  13. CICIBON [Concomitant]
  14. TARGIN PR [Concomitant]
  15. SYNTHYROXINE [Concomitant]
     Active Substance: LEVOTHYROXINE SODIUM

REACTIONS (3)
  - Delirium [Recovering/Resolving]
  - Infection [Recovering/Resolving]
  - Acute kidney injury [Recovering/Resolving]

NARRATIVE: CASE EVENT DATE: 20191227
